FAERS Safety Report 6260190-5 (Version None)
Quarter: 2009Q3

REPORT INFORMATION
  Report Type: 
  Country: None (occurrence: None)
  Receive Date: 20090708
  Receipt Date: 20090630
  Transmission Date: 20100115
  Serious: Yes (Hospitalization)
  Sender: FDA-Public Use
  Company Number: B0536453A

PATIENT
  Sex: Female
  Weight: 34 kg

DRUGS (5)
  1. ARIXTRA [Suspect]
     Indication: THROMBOSIS PROPHYLAXIS
     Dosage: 1.5MG PER DAY
     Route: 058
     Dates: start: 20070907, end: 20070920
  2. WARFARIN SODIUM [Suspect]
     Indication: DRUG USE FOR UNKNOWN INDICATION
     Route: 048
     Dates: start: 20070929, end: 20080901
  3. LOXONIN [Concomitant]
     Indication: OSTEOARTHRITIS
     Route: 048
  4. MUCOSTA [Concomitant]
     Route: 048
  5. CEFAMEZIN [Concomitant]
     Indication: OSTEOARTHRITIS

REACTIONS (1)
  - DEEP VEIN THROMBOSIS [None]
